FAERS Safety Report 5755116-4 (Version None)
Quarter: 2008Q2

REPORT INFORMATION
  Report Type: 
  Country: None (occurrence: None)
  Receive Date: 20080602
  Receipt Date: 20080102
  Transmission Date: 20081010
  Serious: No
  Sender: FDA-Public Use
  Company Number: A0699307A

PATIENT
  Age: 1 Year
  Sex: Female

DRUGS (2)
  1. AMOXICILLIN + CLAVULANATE POTASSIUM [Suspect]
     Indication: EAR INFECTION
     Dosage: 5ML TWICE PER DAY
     Route: 048
     Dates: start: 20071207, end: 20071207
  2. NO CONCURRENT MEDICATION [Concomitant]

REACTIONS (1)
  - MEDICATION ERROR [None]
